FAERS Safety Report 21181185 (Version 3)
Quarter: 2022Q3

REPORT INFORMATION
  Report Type: Spontaneous
  Country: MY (occurrence: MY)
  Receive Date: 20220806
  Receipt Date: 20220829
  Transmission Date: 20221027
  Serious: Yes (Hospitalization, Other)
  Sender: FDA-Public Use
  Company Number: MY-Accord-272312

PATIENT
  Age: 34 Year
  Sex: Female
  Weight: 118 kg

DRUGS (1)
  1. HYDROXYCHLOROQUINE [Suspect]
     Active Substance: HYDROXYCHLOROQUINE
     Indication: Photosensitivity reaction
     Dosage: 200 MG TWICE DAILY
     Route: 048
     Dates: start: 202012

REACTIONS (1)
  - Myasthenia gravis [Recovering/Resolving]
